FAERS Safety Report 13959732 (Version 2)
Quarter: 2018Q2

REPORT INFORMATION
  Report Type: Report from Study
  Country: US (occurrence: US)
  Receive Date: 20170912
  Receipt Date: 20180501
  Transmission Date: 20180711
  Serious: Yes (Other)
  Sender: FDA-Public Use
  Company Number: PHEH2017US028819

PATIENT
  Sex: Male

DRUGS (1)
  1. TEGRETOL XR [Suspect]
     Active Substance: CARBAMAZEPINE
     Indication: PRODUCT USED FOR UNKNOWN INDICATION
     Dosage: 400 MG, UNK
     Route: 048

REACTIONS (6)
  - Seizure [Unknown]
  - Memory impairment [Unknown]
  - Constipation [Unknown]
  - General physical health deterioration [Unknown]
  - Pain [Unknown]
  - Nephrolithiasis [Unknown]
